FAERS Safety Report 21682477 (Version 2)
Quarter: 2024Q2

REPORT INFORMATION
  Report Type: Report from Study
  Country: FR (occurrence: None)
  Receive Date: 20221205
  Receipt Date: 20240419
  Transmission Date: 20240716
  Serious: Yes (Death)
  Sender: FDA-Public Use
  Company Number: 2022A395100

PATIENT
  Age: 916 Month
  Sex: Male
  Weight: 103 kg

DRUGS (3)
  1. EVUSHELD [Suspect]
     Active Substance: CILGAVIMAB\TIXAGEVIMAB
     Indication: COVID-19 prophylaxis
     Dosage: TIXAGEVIMAB 150 MG/CILGAVIMAB 150 MG ONCE/SINGLE ADMINISTRATION
     Route: 030
     Dates: start: 20220608
  2. RITUXIMAB [Concomitant]
     Active Substance: RITUXIMAB
     Indication: Immunosuppression
  3. RITUXIMAB [Concomitant]
     Active Substance: RITUXIMAB
     Indication: Rheumatoid arthritis

REACTIONS (1)
  - Pneumonitis [Fatal]
